FAERS Safety Report 5321238-5 (Version None)
Quarter: 2007Q1

REPORT INFORMATION
  Report Type: 
  Country: None (occurrence: None)
  Receive Date: 20070215
  Receipt Date: 20061009
  Transmission Date: 20070707
  Serious: No
  Sender: FDA-Public Use
  Company Number: 200614534BWH

PATIENT
  Sex: Female

DRUGS (2)
  1. NEXAVAR [Suspect]
     Indication: HEPATIC NEOPLASM MALIGNANT
     Dosage: SEE IMAGE
     Route: 048
     Dates: start: 20060601, end: 20060101
  2. NEXAVAR [Suspect]
     Indication: HEPATIC NEOPLASM MALIGNANT
     Dosage: SEE IMAGE
     Route: 048
     Dates: start: 20060101

REACTIONS (10)
  - ABDOMINAL PAIN UPPER [None]
  - AGEUSIA [None]
  - ALOPECIA [None]
  - BLISTER [None]
  - CONSTIPATION [None]
  - DIARRHOEA [None]
  - DYSGEUSIA [None]
  - FEELING HOT [None]
  - HYPOGEUSIA [None]
  - PALMAR-PLANTAR ERYTHRODYSAESTHESIA SYNDROME [None]
